FAERS Safety Report 6874622-2 (Version None)
Quarter: 2010Q2

REPORT INFORMATION
  Report Type: 
  Country: None (occurrence: None)
  Receive Date: 20100610
  Receipt Date: 20100422
  Transmission Date: 20101027
  Serious: Yes (Other)
  Sender: FDA-Public Use
  Company Number: 2010SP023291

PATIENT
  Age: 55 Year
  Sex: Female

DRUGS (4)
  1. SAPHRIS [Suspect]
     Indication: BIPOLAR DISORDER
     Dosage: 5 MG;BID ; 10 MG;BID
     Dates: end: 20100420
  2. SAPHRIS [Suspect]
     Indication: BIPOLAR DISORDER
     Dosage: 5 MG;BID ; 10 MG;BID
     Dates: start: 20100401
  3. KLONOPIN [Concomitant]
  4. LUNESTA [Concomitant]

REACTIONS (3)
  - ABDOMINAL DISCOMFORT [None]
  - INSOMNIA [None]
  - MANIA [None]
